FAERS Safety Report 4339579-7 (Version None)
Quarter: 2004Q1

REPORT INFORMATION
  Report Type: 
  Country: None (occurrence: None)
  Receive Date: 20040329
  Receipt Date: 20040224
  Transmission Date: 20041129
  Serious: No
  Sender: FDA-Public Use
  Company Number: 04P-163-0251235-00

PATIENT
  Age: 47 Year
  Sex: Female

DRUGS (7)
  1. HUMIRA [Suspect]
     Indication: RHEUMATOID ARTHRITIS
     Dosage: 40 MG, 1 IN 2 WK, SUBCUTANEOUS
     Route: 058
     Dates: start: 20040101
  2. NAPROXEN [Concomitant]
  3. ATORVASTATIN [Concomitant]
  4. MODAFINIL [Concomitant]
  5. LISINOPRIL [Concomitant]
  6. HYDROCHLOROTHIAZIDE [Concomitant]
  7. NATURAL HORMONE [Concomitant]

REACTIONS (3)
  - JOINT SWELLING [None]
  - PAIN IN EXTREMITY [None]
  - UNEVALUABLE EVENT [None]
